FAERS Safety Report 9845965 (Version 1)
Quarter: 2014Q1

REPORT INFORMATION
  Report Type: Spontaneous
  Country: US (occurrence: None)
  Receive Date: 20140123
  Receipt Date: 20140123
  Transmission Date: 20141002
  Serious: Yes (Other)
  Sender: FDA-Public Use
  Company Number: None

PATIENT
  Age: 44 Year
  Sex: Male
  Weight: 92.99 kg

DRUGS (1)
  1. ESCITALOPRAM [Suspect]
     Indication: DEPRESSION
     Dosage: 2  ONCE DAILY  TAKEN BY MOUTH
     Route: 048
     Dates: start: 20140115, end: 20140117

REACTIONS (2)
  - Drug ineffective [None]
  - Product substitution issue [None]
